FAERS Safety Report 7741596-1 (Version None)
Quarter: 2011Q3

REPORT INFORMATION
  Report Type: 
  Country: None (occurrence: None)
  Receive Date: 20110909
  Receipt Date: 20110905
  Transmission Date: 20111222
  Serious: Yes (Life-Threatening, Hospitalization, Other)
  Sender: FDA-Public Use
  Company Number: GB-ASTRAZENECA-2011SE53131

PATIENT
  Age: 31 Year
  Sex: Male

DRUGS (9)
  1. SEROQUEL [Suspect]
     Route: 048
  2. DIAZEPAM [Concomitant]
  3. FERROUS SULFATE TAB [Concomitant]
  4. THIAMINE [Concomitant]
  5. ACAMPROSATE [Suspect]
     Route: 065
  6. VITAMIN B COMPLEX CAP [Concomitant]
  7. VENLAFAXINE HCL [Suspect]
     Route: 065
  8. ZOPICLONE [Concomitant]
  9. LANSOPRAZOLE [Concomitant]

REACTIONS (2)
  - SUICIDE ATTEMPT [None]
  - INTENTIONAL OVERDOSE [None]
